FAERS Safety Report 13974308 (Version 1)
Quarter: 2017Q3

REPORT INFORMATION
  Report Type: Spontaneous
  Country: GB (occurrence: GB)
  Receive Date: 20170915
  Receipt Date: 20170915
  Transmission Date: 20171128
  Serious: Yes (Death)
  Sender: FDA-Public Use
  Company Number: GB-PFIZER INC-2034628

PATIENT
  Age: 86 Year
  Sex: Female
  Weight: 70 kg

DRUGS (10)
  1. TAZOCIN [Suspect]
     Active Substance: PIPERACILLIN SODIUM\TAZOBACTAM SODIUM
     Indication: LIVER ABSCESS
     Dosage: UNK
  2. TAZOBACTAM [Suspect]
     Active Substance: TAZOBACTAM
     Indication: LIVER ABSCESS
     Dosage: 4.5 G, UNK
     Route: 042
     Dates: start: 20131018, end: 20131025
  3. LATANOPROST. [Concomitant]
     Active Substance: LATANOPROST
     Indication: GLAUCOMA
     Dosage: 1 GTT, FREQ: 1 DAY, INTERVAL: 1
     Route: 031
     Dates: start: 20131018, end: 20131025
  4. METRONIDAZOLE. [Suspect]
     Active Substance: METRONIDAZOLE
     Indication: LIVER ABSCESS
     Dosage: 500 MG, UNK
     Route: 042
     Dates: start: 20131025, end: 20131025
  5. PIPERACILLIN/TAZOBACTAM [Suspect]
     Active Substance: PIPERACILLIN SODIUM\TAZOBACTAM SODIUM
     Indication: LIVER ABSCESS
     Dosage: 4.5 G, UNK
     Route: 042
     Dates: start: 20131018, end: 20131025
  6. BRINZOLAMIDE [Concomitant]
     Active Substance: BRINZOLAMIDE
     Indication: GLAUCOMA
     Dosage: 1 GTT, FREQ: 1 DAY, INTERVAL: 1
     Route: 031
  7. LATANOPROST. [Concomitant]
     Active Substance: LATANOPROST
     Indication: SEPSIS
  8. MAGNESIUM GLYCEROPHOSPHATE [Concomitant]
     Active Substance: MAGNESIUM GLYCEROPHOSPHATE
     Indication: SEPSIS
  9. BRINZOLAMIDE [Concomitant]
     Active Substance: BRINZOLAMIDE
     Indication: SEPSIS
  10. MAGNESIUM GLYCEROPHOSPHATE [Concomitant]
     Active Substance: MAGNESIUM GLYCEROPHOSPHATE
     Indication: BLOOD MAGNESIUM DECREASED
     Dosage: 4 MMOL, UNK
     Route: 048
     Dates: start: 20131018, end: 20131025

REACTIONS (2)
  - Drug administration error [Fatal]
  - Anaphylactic reaction [Fatal]

NARRATIVE: CASE EVENT DATE: 20131025
